FAERS Safety Report 12566163 (Version 3)
Quarter: 2016Q3

REPORT INFORMATION
  Report Type: Report from Study
  Country: US (occurrence: US)
  Receive Date: 20160718
  Receipt Date: 20160815
  Transmission Date: 20161109
  Serious: Yes (Hospitalization, Other)
  Sender: FDA-Public Use
  Company Number: US-GILEAD-2016-0223338

PATIENT
  Age: 33 Year
  Sex: Female

DRUGS (4)
  1. AMBRISENTAN [Suspect]
     Active Substance: AMBRISENTAN
     Indication: PRODUCT USED FOR UNKNOWN INDICATION
     Dosage: 10 MG, QD
     Route: 065
     Dates: start: 20130305
  2. ADEMPAS [Concomitant]
     Active Substance: RIOCIGUAT
  3. OPSUMIT [Concomitant]
     Active Substance: MACITENTAN
  4. VELETRI [Concomitant]
     Active Substance: EPOPROSTENOL

REACTIONS (7)
  - Sepsis [Unknown]
  - Clostridium difficile infection [Unknown]
  - Device related infection [Unknown]
  - Abdominal distension [Not Recovered/Not Resolved]
  - Pyrexia [Unknown]
  - Catheter site swelling [Unknown]
  - Catheter site warmth [Unknown]
